FAERS Safety Report 8520881-X (Version None)
Quarter: 2012Q3

REPORT INFORMATION
  Report Type: 
  Country: None (occurrence: None)
  Receive Date: 20120719
  Receipt Date: 20120711
  Transmission Date: 20120928
  Serious: Yes (Other)
  Sender: FDA-Public Use
  Company Number: DK-JNJFOC-20120212877

PATIENT
  Sex: Female

DRUGS (2)
  1. ACETAMINOPHEN [Interacting]
     Indication: PRODUCT USED FOR UNKNOWN INDICATION
     Route: 065
  2. CONCERTA [Suspect]
     Indication: ATTENTION DEFICIT/HYPERACTIVITY DISORDER
     Route: 048

REACTIONS (21)
  - VISION BLURRED [None]
  - OBSESSIVE THOUGHTS [None]
  - SLEEP ATTACKS [None]
  - BACK PAIN [None]
  - DRUG EFFECT DECREASED [None]
  - PALPITATIONS [None]
  - ARTHRALGIA [None]
  - GALACTORRHOEA [None]
  - STOMATITIS [None]
  - INFECTION [None]
  - TOOTH EROSION [None]
  - BREAST PAIN [None]
  - SUICIDAL IDEATION [None]
  - EUPHORIC MOOD [None]
  - MYALGIA [None]
  - BREAST DISCOMFORT [None]
  - DRUG INTERACTION [None]
  - RASH [None]
  - COLD SWEAT [None]
  - MANIA [None]
  - DIPLOPIA [None]
